FAERS Safety Report 8774653 (Version 2)
Quarter: 2012Q4

REPORT INFORMATION
  Report Type: Report from Study
  Country: AU (occurrence: AU)
  Receive Date: 20120907
  Receipt Date: 20121003
  Transmission Date: 20130627
  Serious: Yes (Life-Threatening, Hospitalization)
  Sender: FDA-Public Use
  Company Number: AU-009507513-2012SP016936

PATIENT

DRUGS (25)
  1. TEMOZOLOMIDE [Suspect]
     Indication: GLIOMA
     Dosage: 270 mg, Unknown
     Route: 048
     Dates: start: 20111201, end: 20120310
  2. TEMOZOLOMIDE [Suspect]
     Dosage: UNK
     Dates: end: 20120502
  3. CARBAMAZEPINE [Suspect]
     Indication: CONVULSION
     Dosage: 100 mg, BID
     Route: 048
     Dates: end: 20120328
  4. HYSERENIN TABLETS 100 MG [Concomitant]
     Indication: CONVULSION
     Dosage: 300 mg, bid
     Route: 048
     Dates: start: 201108, end: 2012
  5. FLUOXETINE [Concomitant]
     Indication: DEPRESSION
     Dosage: 40 mg, qam
     Route: 048
     Dates: start: 201108
  6. FLUOXETINE [Concomitant]
     Dosage: 60 mg, qd
  7. CONTROLOC [Concomitant]
     Indication: GASTROOESOPHAGEAL REFLUX DISEASE
     Dosage: 40 mg, qd
     Route: 048
     Dates: start: 20120323
  8. FLUTICASONE PROPIONATE (+) SALMETEROL XINAFOATE [Concomitant]
     Indication: CHRONIC OBSTRUCTIVE PULMONARY DISEASE
     Dosage: 250/25 2 PUFFS
     Route: 055
  9. HYSERENIN TABLETS 100 MG [Concomitant]
     Indication: CONVULSION
     Dosage: 700 mg, bid
     Route: 048
     Dates: start: 20120321
  10. LEVETIRACETAM [Concomitant]
     Indication: FEELING OF RELAXATION
     Dosage: 750 mg, bid
     Route: 048
     Dates: start: 20120323, end: 20120326
  11. METOCLOPRAMIDE HYDROCHLORIDE [Concomitant]
     Indication: GASTROINTESTINAL DISORDER
     Dosage: 10 mg, q6h
     Route: 048
     Dates: start: 20120325
  12. DOXYCYCLINE [Concomitant]
     Indication: INFECTION PROPHYLAXIS
     Dosage: 100 mg, bid
     Route: 048
     Dates: start: 20120326, end: 20120408
  13. CLONAZEPAM [Concomitant]
     Dosage: 0.5 mg, PRN
     Route: 048
     Dates: start: 20120328
  14. CLONAZEPAM [Concomitant]
     Dosage: UNK
     Dates: start: 20120408
  15. PANADOL [Concomitant]
     Indication: HEADACHE
     Dosage: 1 g, qid
     Route: 048
     Dates: start: 20120404
  16. MAGMIN [Concomitant]
     Indication: MINERAL SUPPLEMENTATION
     Dosage: 500 mg, bid
     Route: 048
     Dates: start: 20120409
  17. CLEXANE (ENOXAPARIN SODIUM) [Concomitant]
     Dosage: UPDATE (03MAY2012)- USED FOR PREVENTION OF THROMBUS
     Route: 058
     Dates: start: 20120419, end: 20120429
  18. CLEXANE (ENOXAPARIN SODIUM) [Concomitant]
     Indication: PROPHYLAXIS
  19. TEMAZEPAM [Concomitant]
     Indication: INSOMNIA
     Dosage: 10 mg, prn
     Route: 048
     Dates: start: 20120501, end: 20120501
  20. CEFTRIAXONE SODIUM [Concomitant]
     Indication: PROPHYLAXIS URINARY TRACT INFECTION
     Dosage: 1 g, qd
     Route: 042
     Dates: start: 20120419, end: 20120420
  21. ROXITHROMYCIN [Concomitant]
     Indication: PROPHYLAXIS URINARY TRACT INFECTION
     Dosage: 300 mg, qd
     Route: 048
     Dates: start: 20120419, end: 20120501
  22. OXYCODONE [Concomitant]
     Dosage: 5 mg, Unknown
     Route: 048
     Dates: start: 20120324, end: 20120404
  23. PANADEINE (ACETAMINOPHEN (+) CODEINE PHOSPHATE) [Concomitant]
     Dosage: UNK
     Route: 048
     Dates: start: 20120323
  24. BEBETINA [Concomitant]
     Dosage: 1 g, qd
     Route: 065
  25. BEBETINA [Concomitant]
     Dosage: 1 UNK, UNK

REACTIONS (8)
  - Pneumocystis jiroveci pneumonia [Unknown]
  - Lower respiratory tract infection [Unknown]
  - Pneumonitis [Unknown]
  - Hepatitis acute [Unknown]
  - Acute respiratory failure [Not Recovered/Not Resolved]
  - Pleuritic pain [Not Recovered/Not Resolved]
  - Gastroenteritis viral [Recovered/Resolved]
  - Dyspnoea [Recovered/Resolved]
